FAERS Safety Report 9691725 (Version 1)
Quarter: 2013Q4

REPORT INFORMATION
  Report Type: Spontaneous
  Country: US (occurrence: US)
  Receive Date: 20131115
  Receipt Date: 20131115
  Transmission Date: 20140711
  Serious: Yes (Other)
  Sender: FDA-Public Use
  Company Number: US-009507513-1311USA005520

PATIENT
  Age: 8 Year
  Sex: Male

DRUGS (1)
  1. SINGULAIR [Suspect]
     Indication: RHINITIS PERENNIAL
     Dosage: 5 MG AT BEDTIME
     Route: 065

REACTIONS (5)
  - Eye pruritus [Unknown]
  - Lacrimation increased [Unknown]
  - Nasal congestion [Unknown]
  - Product substitution issue [Unknown]
  - Rhinorrhoea [Unknown]
